FAERS Safety Report 17979198 (Version 1)
Quarter: 2020Q3

REPORT INFORMATION
  Report Type: Report from Study
  Country: IN (occurrence: IN)
  Receive Date: 20200703
  Receipt Date: 20200703
  Transmission Date: 20201103
  Serious: Yes (Death)
  Sender: FDA-Public Use
  Company Number: IN-PFIZER INC-2020255216

PATIENT

DRUGS (5)
  1. DOXORUBICIN HCL [Suspect]
     Active Substance: DOXORUBICIN HYDROCHLORIDE
     Indication: EWING^S SARCOMA
     Dosage: 75 MG/M2, ALTERNATING CYCLES, EVERY 3 WEEKS FOR A TOTAL OF 48 WEEKS
  2. ETOPOSIDE. [Suspect]
     Active Substance: ETOPOSIDE
     Indication: EWING^S SARCOMA
     Dosage: 100 MG/M2/DAY FOR 5 DAYS, EVERY 3 WEEKS FOR A TOTAL OF 48 WEEKS
  3. VINCRISTINE [Suspect]
     Active Substance: VINCRISTINE
     Indication: EWING^S SARCOMA
     Dosage: 1.5 MG/M2, ALTERNATING CYCLES, EVERY 3 WEEKS FOR A TOTAL OF 48 WEEKS
  4. CYCLOPHOSPHAMIDE. [Suspect]
     Active Substance: CYCLOPHOSPHAMIDE
     Indication: EWING^S SARCOMA
     Dosage: 1200 MG/M2, ALTERNATING CYCLES, EVERY 3 WEEKS FOR A TOTAL OF 48 WEEKS
  5. IFOSFAMIDE. [Suspect]
     Active Substance: IFOSFAMIDE
     Indication: BONE SARCOMA
     Dosage: 1800 MG/M2/DAY FOR 5 DAYS, EVERY 3 WEEKS FOR A TOTAL OF 48 WEEKS

REACTIONS (1)
  - Death [Fatal]
